FAERS Safety Report 8807007 (Version 1)
Quarter: 2012Q4

REPORT INFORMATION
  Report Type: Report from Study
  Country: CA (occurrence: CA)
  Receive Date: 20120925
  Receipt Date: 20120925
  Transmission Date: 20130627
  Serious: Yes (Hospitalization)
  Sender: FDA-Public Use
  Company Number: CA-ROCHE-1136690

PATIENT
  Age: 46 Year
  Sex: Male
  Weight: 88 kg

DRUGS (6)
  1. AVASTIN [Suspect]
     Indication: GLIOBLASTOMA
     Route: 042
     Dates: start: 20120113, end: 20120323
  2. AVASTIN [Suspect]
     Route: 065
     Dates: start: 20120420
  3. DILANTIN [Concomitant]
     Route: 065
     Dates: end: 201204
  4. DIPHENHYDRAMINE [Concomitant]
     Indication: PREMEDICATION
     Route: 048
     Dates: start: 20120323, end: 20120323
  5. ACETAMINOPHEN [Concomitant]
     Indication: PREMEDICATION
     Route: 048
     Dates: start: 20120323, end: 20120323
  6. METHYLPREDNISOLONE [Concomitant]
     Indication: PREMEDICATION
     Route: 042
     Dates: start: 20120323, end: 20120323

REACTIONS (1)
  - Hallucination [Recovered/Resolved]
